FAERS Safety Report 7549848-5 (Version None)
Quarter: 2011Q2

REPORT INFORMATION
  Report Type: 
  Country: None (occurrence: None)
  Receive Date: 20110615
  Receipt Date: 20110606
  Transmission Date: 20111010
  Serious: Yes (Other)
  Sender: FDA-Public Use
  Company Number: US-ASTRAZENECA-2010SE37832

PATIENT
  Age: 59 Year
  Sex: Female
  Weight: 86.2 kg

DRUGS (1)
  1. CRESTOR [Suspect]
     Indication: BLOOD CHOLESTEROL INCREASED
     Route: 048
     Dates: start: 20100601

REACTIONS (5)
  - NASOPHARYNGITIS [None]
  - CATARACT OPERATION [None]
  - COUGH [None]
  - CATARACT [None]
  - THERAPEUTIC RESPONSE UNEXPECTED [None]
